FAERS Safety Report 13090750 (Version 1)
Quarter: 2017Q1

REPORT INFORMATION
  Report Type: Spontaneous
  Country: US (occurrence: US)
  Receive Date: 20170106
  Receipt Date: 20170106
  Transmission Date: 20170428
  Serious: No
  Sender: FDA-Public Use
  Company Number: US-ASTRAZENECA-2017SE00768

PATIENT
  Age: 23562 Day
  Sex: Male
  Weight: 131.5 kg

DRUGS (7)
  1. BYDUREON [Suspect]
     Active Substance: EXENATIDE
     Indication: TYPE 2 DIABETES MELLITUS
     Route: 058
     Dates: start: 20161220
  2. SINGULAIR [Concomitant]
     Active Substance: MONTELUKAST SODIUM
     Indication: ASTHMA
     Route: 048
  3. BYDUREON [Suspect]
     Active Substance: EXENATIDE
     Indication: WEIGHT INCREASED
     Route: 058
     Dates: start: 20161220
  4. BYDUREON [Suspect]
     Active Substance: EXENATIDE
     Indication: DECREASED APPETITE
     Route: 058
     Dates: start: 20161220
  5. PROAIR HFA [Concomitant]
     Active Substance: ALBUTEROL SULFATE
     Indication: ASTHMA
     Dosage: 2 PUFFS AS NEEDED
     Route: 055
  6. METFORMIN [Concomitant]
     Active Substance: METFORMIN HYDROCHLORIDE
     Indication: DIABETES MELLITUS
     Route: 048
  7. GLIMEPIRIDE. [Concomitant]
     Active Substance: GLIMEPIRIDE
     Indication: DRUG THERAPY ENHANCEMENT
     Route: 048

REACTIONS (4)
  - Off label use [Not Recovered/Not Resolved]
  - Injection site mass [Not Recovered/Not Resolved]
  - Product use issue [Not Recovered/Not Resolved]
  - Constipation [Not Recovered/Not Resolved]

NARRATIVE: CASE EVENT DATE: 20161220
